FAERS Safety Report 22196256 (Version 2)
Quarter: 2023Q2

REPORT INFORMATION
  Report Type: Spontaneous
  Country: US (occurrence: US)
  Receive Date: 20230411
  Receipt Date: 20230419
  Transmission Date: 20230722
  Serious: Yes (Hospitalization, Other)
  Sender: FDA-Public Use
  Company Number: IN-ALKEM LABORATORIES LIMITED-IN-ALKEM-2023-03747

PATIENT
  Age: 26 Year
  Sex: Male

DRUGS (7)
  1. LEVETIRACETAM [Suspect]
     Active Substance: LEVETIRACETAM
     Indication: Status epilepticus
     Dosage: 750 MILLIGRAM, BID, TABLET, MAINTANAINENCE DOSE
     Route: 042
  2. LEVETIRACETAM [Suspect]
     Active Substance: LEVETIRACETAM
     Dosage: 4 GRAM, LOADING DOSE
     Route: 042
  3. LEVETIRACETAM [Suspect]
     Active Substance: LEVETIRACETAM
     Dosage: 1000 MILLIGRAM, BID, EVERY 12 HOURS
     Route: 042
  4. HALOPERIDOL [Concomitant]
     Active Substance: HALOPERIDOL
     Indication: Seizure
     Dosage: UNK
     Route: 065
  5. KETAMINE [Concomitant]
     Active Substance: KETAMINE
     Indication: Seizure
     Dosage: UNK
     Route: 065
  6. MIDAZOLAM [Concomitant]
     Active Substance: MIDAZOLAM
     Indication: Seizure
     Dosage: 10 MILLIGRAM
     Route: 030
  7. MIDAZOLAM [Concomitant]
     Active Substance: MIDAZOLAM
     Dosage: 4 MILLIGRAM
     Route: 065

REACTIONS (1)
  - Acute kidney injury [Recovering/Resolving]
